FAERS Safety Report 4965019-0 (Version None)
Quarter: 2006Q1

REPORT INFORMATION
  Report Type: 
  Country: None (occurrence: None)
  Receive Date: 20060130
  Receipt Date: 20051003
  Transmission Date: 20060701
  Serious: No
  Sender: FDA-Public Use
  Company Number: COT_0227_2005

PATIENT
  Age: 52 Year
  Sex: Male
  Weight: 87.5442 kg

DRUGS (5)
  1. VENTAVIS [Suspect]
     Indication: PULMONARY HYPERTENSION
     Dosage: 5 MCG 5XD IH
     Dates: start: 20050926
  2. LASIX [Concomitant]
  3. K-DUR 10 [Concomitant]
  4. FOLIC ACID [Concomitant]
  5. MAGNESIUM [Concomitant]

REACTIONS (4)
  - EPISTAXIS [None]
  - HEADACHE [None]
  - NASAL DRYNESS [None]
  - TOOTHACHE [None]
